FAERS Safety Report 6626916-3 (Version None)
Quarter: 2010Q1

REPORT INFORMATION
  Report Type: 
  Country: None (occurrence: None)
  Receive Date: 20100308
  Receipt Date: 20100222
  Transmission Date: 20100710
  Serious: Yes (Other)
  Sender: FDA-Public Use
  Company Number: IT-1181028

PATIENT

DRUGS (2)
  1. TRAVATAN          (TRAVOPROST) [Suspect]
     Dosage: OPHTHALMIC
     Route: 047
  2. ASPIRIN [Concomitant]

REACTIONS (1)
  - EPISTAXIS [None]
